FAERS Safety Report 24937549 (Version 2)
Quarter: 2025Q1

REPORT INFORMATION
  Report Type: Spontaneous
  Country: GB (occurrence: GB)
  Receive Date: 20250206
  Receipt Date: 20250218
  Transmission Date: 20250409
  Serious: Yes (Other)
  Sender: PFIZER
  Company Number: GB-PFIZER INC-202500024445

PATIENT
  Sex: Female

DRUGS (3)
  1. LORLATINIB [Suspect]
     Active Substance: LORLATINIB
     Indication: Lung neoplasm malignant
     Dosage: 100 UNK
  2. LORLATINIB [Suspect]
     Active Substance: LORLATINIB
     Dosage: 75 UNK
  3. LORLATINIB [Suspect]
     Active Substance: LORLATINIB
     Dosage: 50 MG, 1X/DAY
     Dates: start: 202208

REACTIONS (8)
  - Hallucination, auditory [Unknown]
  - Hypoaesthesia [Not Recovered/Not Resolved]
  - Alopecia [Recovered/Resolved]
  - Dyspnoea [Not Recovered/Not Resolved]
  - Night sweats [Recovering/Resolving]
  - Weight increased [Unknown]
  - Constipation [Unknown]
  - Blood cholesterol increased [Unknown]

NARRATIVE: CASE EVENT DATE: 20220801
